FAERS Safety Report 25352331 (Version 1)
Quarter: 2025Q2

REPORT INFORMATION
  Report Type: Spontaneous
  Country: US (occurrence: None)
  Receive Date: 20250522
  Receipt Date: 20250522
  Transmission Date: 20250716
  Serious: Yes (Other)
  Sender: FDA-CTU
  Company Number: None

PATIENT
  Age: 54 Year
  Sex: Female
  Weight: 109.8 kg

DRUGS (6)
  1. KERASAL ATHLETES FOOT POWDER [Suspect]
     Active Substance: TOLNAFTATE
     Indication: Antifungal treatment
     Route: 061
     Dates: start: 20250517, end: 20250517
  2. PROBIOTICS NOS [Concomitant]
     Active Substance: PROBIOTICS NOS
  3. ASTRAGULUS [Concomitant]
  4. VITAMIN C [Concomitant]
     Active Substance: ASCORBIC ACID
  5. VITAMIN D [Concomitant]
     Active Substance: VITAMIN D NOS
  6. HUMAN IMMUNOGLOBULIN G [Concomitant]
     Active Substance: HUMAN IMMUNOGLOBULIN G

REACTIONS (6)
  - Application site burn [None]
  - Second degree chemical burn of skin [None]
  - First degree chemical burn of skin [None]
  - Skin erosion [None]
  - Application site haemorrhage [None]
  - Wound [None]

NARRATIVE: CASE EVENT DATE: 20250519
